FAERS Safety Report 5146610-8 (Version None)
Quarter: 2006Q4

REPORT INFORMATION
  Report Type: 
  Country: None (occurrence: None)
  Receive Date: 20060911
  Receipt Date: 20060822
  Transmission Date: 20070319
  Serious: No
  Sender: FDA-Public Use
  Company Number: IND-AE-06-SAN-034

PATIENT
  Age: 78 Year
  Sex: Female
  Weight: 61.2356 kg

DRUGS (11)
  1. SANCTURA [Suspect]
     Indication: HYPERTONIC BLADDER
     Dosage: 20 MG-QD-ORAL
     Route: 048
     Dates: start: 20060821
  2. EFFEXOR [Concomitant]
  3. ZOCOR [Concomitant]
  4. FOSAMAX [Concomitant]
  5. LOTREL [Concomitant]
  6. LISINOPRIL [Concomitant]
  7. XANAX [Concomitant]
  8. TRAZODONE HCL [Concomitant]
  9. LEXAPRO [Concomitant]
  10. HYDROCHLOROTHIAZIDE [Concomitant]
  11. TRUSOPT [Concomitant]

REACTIONS (2)
  - BACK PAIN [None]
  - VISION BLURRED [None]
